FAERS Safety Report 26028326 (Version 1)
Quarter: 2025Q4

REPORT INFORMATION
  Report Type: Spontaneous
  Country: EU (occurrence: EU)
  Receive Date: 20251111
  Receipt Date: 20251111
  Transmission Date: 20260118
  Serious: Yes (Hospitalization, Other)
  Sender: GILEAD
  Company Number: None

PATIENT
  Age: 45 Year
  Sex: Female

DRUGS (1)
  1. YESCARTA [Suspect]
     Active Substance: AXICABTAGENE CILOLEUCEL
     Indication: Lymphoma
     Dosage: 240 ML, ONCE
     Route: 042
     Dates: start: 20240814, end: 20240814

REACTIONS (1)
  - Bacterial pyelonephritis [Recovering/Resolving]

NARRATIVE: CASE EVENT DATE: 20250827
